FAERS Safety Report 10077405 (Version 1)
Quarter: 2014Q2

REPORT INFORMATION
  Report Type: Spontaneous
  Country: US (occurrence: US)
  Receive Date: 20140414
  Receipt Date: 20140414
  Transmission Date: 20141212
  Serious: No
  Sender: FDA-Public Use
  Company Number: US-PFIZER INC-2014101282

PATIENT
  Sex: Female

DRUGS (3)
  1. PREMARIN [Suspect]
     Dosage: 0.9 MG, UNK
  2. PREMARIN [Suspect]
     Dosage: 1.25 MG, UNK
  3. PREMARIN [Suspect]
     Dosage: 0.925 MG (0.3 MG + 0.625 MG), UNK

REACTIONS (2)
  - Breast tenderness [Unknown]
  - Drug ineffective [Unknown]
